FAERS Safety Report 8235749-6 (Version None)
Quarter: 2012Q1

REPORT INFORMATION
  Report Type: 
  Country: None (occurrence: None)
  Receive Date: 20120326
  Receipt Date: 20120316
  Transmission Date: 20120608
  Serious: Yes (Hospitalization)
  Sender: FDA-Public Use
  Company Number: PHHY2012IT022638

PATIENT
  Sex: Female

DRUGS (1)
  1. VOLTAREN [Suspect]
     Dosage: 1 DF, UNK
     Route: 054
     Dates: start: 20091225, end: 20091225

REACTIONS (2)
  - LARYNGEAL OEDEMA [None]
  - TACHYCARDIA [None]
